FAERS Safety Report 6093996-6 (Version None)
Quarter: 2009Q1

REPORT INFORMATION
  Report Type: 
  Country: None (occurrence: None)
  Receive Date: 20090226
  Receipt Date: 20090223
  Transmission Date: 20090719
  Serious: Yes (Other)
  Sender: FDA-Public Use
  Company Number: B0559450A

PATIENT
  Age: 8 Year
  Sex: Male

DRUGS (3)
  1. RELENZA [Suspect]
     Indication: INFLUENZA
     Dosage: 10MG TWICE PER DAY
     Route: 055
     Dates: start: 20090130
  2. PERIACTIN [Concomitant]
     Indication: INFLUENZA
     Dosage: 6MG THREE TIMES PER DAY
     Route: 048
     Dates: start: 20090130
  3. ASVERIN [Concomitant]
     Indication: INFLUENZA
     Dosage: 30MG THREE TIMES PER DAY
     Route: 048
     Dates: start: 20090130

REACTIONS (4)
  - ABNORMAL BEHAVIOUR [None]
  - CONVULSION [None]
  - DIZZINESS [None]
  - TREMOR [None]
